FAERS Safety Report 21344447 (Version 1)
Quarter: 2022Q3

REPORT INFORMATION
  Report Type: Other
  Country: US (occurrence: US)
  Receive Date: 20220916
  Receipt Date: 20220916
  Transmission Date: 20221027
  Serious: Yes (Hospitalization)
  Sender: FDA-Public Use
  Company Number: US-LEADIANT GMBH-2022STPI000227

PATIENT
  Sex: Female

DRUGS (1)
  1. MATULANE [Suspect]
     Active Substance: PROCARBAZINE HYDROCHLORIDE
     Indication: Brain neoplasm malignant
     Dosage: 50 MILLIGRAM, TAKE 4 CAPSULES (200 MG TOTAL)  DAILY ON DAYS 8 TO 21 OUT OF 42 DAY CYCLE
     Route: 048
     Dates: start: 20220407

REACTIONS (1)
  - Full blood count abnormal [Unknown]
